FAERS Safety Report 12572780 (Version 2)
Quarter: 2016Q3

REPORT INFORMATION
  Report Type: Spontaneous
  Country: US (occurrence: US)
  Receive Date: 20160720
  Receipt Date: 20160831
  Transmission Date: 20161109
  Serious: Yes (Other)
  Sender: FDA-Public Use
  Company Number: US-TEVA-669119USA

PATIENT
  Age: 22 Year
  Sex: Female

DRUGS (6)
  1. TREXIMET [Concomitant]
     Active Substance: NAPROXEN SODIUM\SUMATRIPTAN SUCCINATE
  2. ZECUITY [Suspect]
     Active Substance: SUMATRIPTAN SUCCINATE
     Indication: HEADACHE
     Route: 062
     Dates: start: 201602, end: 201602
  3. ZECUITY [Suspect]
     Active Substance: SUMATRIPTAN SUCCINATE
     Route: 062
     Dates: start: 201603, end: 201603
  4. VALTREX [Concomitant]
     Active Substance: VALACYCLOVIR HYDROCHLORIDE
  5. MIRENA [Concomitant]
     Active Substance: LEVONORGESTREL
  6. ZECUITY [Suspect]
     Active Substance: SUMATRIPTAN SUCCINATE
     Route: 062
     Dates: start: 201606, end: 201606

REACTIONS (16)
  - Application site burn [Recovered/Resolved]
  - Drug effect incomplete [Unknown]
  - Application site pain [Recovered/Resolved]
  - Application site erythema [Recovered/Resolved]
  - Application site inflammation [Recovered/Resolved]
  - Application site paraesthesia [Recovered/Resolved]
  - Product leakage [Unknown]
  - Application site discolouration [Recovered/Resolved]
  - Circumstance or information capable of leading to medication error [Unknown]
  - Application site irritation [Recovered/Resolved]
  - Application site discomfort [Recovered/Resolved]
  - Product adhesion issue [Unknown]
  - Product physical issue [Unknown]
  - Application site warmth [Recovered/Resolved]
  - Application site pruritus [Recovered/Resolved]
  - Application site papules [Recovered/Resolved]

NARRATIVE: CASE EVENT DATE: 201606
